FAERS Safety Report 7571047-1 (Version None)
Quarter: 2011Q2

REPORT INFORMATION
  Report Type: 
  Country: None (occurrence: None)
  Receive Date: 20110624
  Receipt Date: 20110617
  Transmission Date: 20111010
  Serious: Yes (Other)
  Sender: FDA-Public Use
  Company Number: US-ROCHE-784300

PATIENT
  Sex: Male
  Weight: 115 kg

DRUGS (9)
  1. PEGINTERFERON ALFA-2A [Suspect]
     Indication: HEPATITIS C
     Route: 058
     Dates: start: 20100827
  2. XANAX [Concomitant]
     Indication: ANGER
     Dates: start: 20110407
  3. LEXAPRO [Concomitant]
     Indication: DEPRESSION
     Dates: start: 20101118
  4. HALCION [Concomitant]
     Indication: INSOMNIA
     Dates: start: 20101217
  5. RIBAVIRIN [Suspect]
     Indication: HEPATITIS C
     Route: 048
     Dates: start: 20100827
  6. HYDROCHLOROTHIAZIDE [Concomitant]
     Indication: HYPERTENSION
     Dates: start: 20101129
  7. RIBAVIRIN [Suspect]
     Route: 048
  8. BLINDED PF-00868554 [Suspect]
     Indication: HEPATITIS C
     Route: 065
  9. PROMETHAZINE HCL [Concomitant]
     Indication: NAUSEA
     Dates: start: 20101002

REACTIONS (3)
  - BLOOD URIC ACID INCREASED [None]
  - BLOOD UREA INCREASED [None]
  - BLOOD CREATININE INCREASED [None]
